FAERS Safety Report 9477913 (Version 2)
Quarter: 2013Q3

REPORT INFORMATION
  Report Type: Report from Study
  Country: US (occurrence: US)
  Receive Date: 20130827
  Receipt Date: 20130827
  Transmission Date: 20140515
  Serious: Yes (Death)
  Sender: FDA-Public Use
  Company Number: US-ROCHE-1266682

PATIENT
  Age: 63 Year
  Sex: Female
  Weight: 68.55 kg

DRUGS (1)
  1. HERCEPTIN [Suspect]
     Indication: BREAST CANCER
     Route: 065

REACTIONS (2)
  - Breast cancer metastatic [Fatal]
  - Haemorrhage intracranial [Fatal]
